FAERS Safety Report 8111348-1 (Version None)
Quarter: 2012Q1

REPORT INFORMATION
  Report Type: 
  Country: None (occurrence: None)
  Receive Date: 20120203
  Receipt Date: 20110920
  Transmission Date: 20120608
  Serious: No
  Sender: FDA-Public Use
  Company Number: US-GLAXOSMITHKLINE-A0945315A

PATIENT
  Sex: Female

DRUGS (2)
  1. LAMICTAL [Suspect]
     Indication: PRODUCT USED FOR UNKNOWN INDICATION
     Dosage: 50MG PER DAY
     Route: 048
     Dates: start: 20110801
  2. ESTROGENIC SUBSTANCE [Concomitant]

REACTIONS (3)
  - CONJUNCTIVITIS [None]
  - EYE PRURITUS [None]
  - PSEUDOPAPILLOEDEMA [None]
